FAERS Safety Report 8810732 (Version 1)
Quarter: 2012Q4

REPORT INFORMATION
  Report Type: 
  Country: US (occurrence: US)
  Receive Date: 20120927
  Receipt Date: 20120927
  Transmission Date: 20130627
  Serious: No
  Sender: FDA-Public Use
  Company Number: US-MYLANLABS-2012S1014579

PATIENT
  Age: 72 Year
  Sex: Male

DRUGS (15)
  1. TACROLIMUS [Suspect]
     Indication: HEART TRANSPLANT
     Dates: start: 20120412
  2. PROGRAF [Suspect]
     Indication: HEART TRANSPLANT
     Dates: start: 20100604, end: 20120326
  3. PROGRAF [Suspect]
     Indication: HEART TRANSPLANT
     Dates: start: 2012
  4. ASA [Concomitant]
  5. LIPITOR [Concomitant]
  6. FERREX FORTE [Concomitant]
  7. CALCIUM [Concomitant]
  8. VITAMIN D [Concomitant]
  9. LANTUS [Concomitant]
  10. TAMSULOSIN [Concomitant]
  11. AVODART [Concomitant]
  12. VITAMIN C [Concomitant]
  13. COQ-10 [Concomitant]
  14. PREDNISONE [Concomitant]
     Dates: start: 20100611, end: 20100910
  15. CELLCEPT /01275102/ [Concomitant]
     Dates: start: 20100611, end: 20101210

REACTIONS (17)
  - Lupus-like syndrome [Not Recovered/Not Resolved]
  - Mass [Not Recovered/Not Resolved]
  - Skin atrophy [Not Recovered/Not Resolved]
  - Skin haemorrhage [Not Recovered/Not Resolved]
  - Scab [Not Recovered/Not Resolved]
  - Oropharyngeal pain [Not Recovered/Not Resolved]
  - Headache [Not Recovered/Not Resolved]
  - Dizziness [Not Recovered/Not Resolved]
  - Arthralgia [Recovering/Resolving]
  - Abdominal pain upper [Recovering/Resolving]
  - Abdominal discomfort [Recovering/Resolving]
  - Hypoaesthesia [Not Recovered/Not Resolved]
  - Hypoaesthesia [Not Recovered/Not Resolved]
  - Muscle spasms [Not Recovered/Not Resolved]
  - Oedema peripheral [Recovered/Resolved]
  - Pruritus [Not Recovered/Not Resolved]
  - Rash [Not Recovered/Not Resolved]
